FAERS Safety Report 5378362-0 (Version None)
Quarter: 2007Q3

REPORT INFORMATION
  Report Type: 
  Country: None (occurrence: None)
  Receive Date: 20070702
  Receipt Date: 20070702
  Transmission Date: 20080115
  Serious: Yes (Hospitalization)
  Sender: FDA-Public Use
  Company Number: None

PATIENT
  Sex: Female
  Weight: 90 kg

DRUGS (5)
  1. TAXOL [Suspect]
     Dosage: 338 MG
  2. LEXAPRO [Concomitant]
  3. PEPCID [Concomitant]
  4. PERCOCET [Concomitant]
  5. RESTASIS [Concomitant]

REACTIONS (17)
  - BACK PAIN [None]
  - CATHETER SITE ERYTHEMA [None]
  - CHEST PAIN [None]
  - CREPITATIONS [None]
  - DYSPNOEA [None]
  - HEADACHE [None]
  - INFUSION SITE INFLAMMATION [None]
  - INFUSION SITE PAIN [None]
  - MYALGIA [None]
  - NASAL CONGESTION [None]
  - PAIN [None]
  - PHARYNGOLARYNGEAL PAIN [None]
  - PLEURITIC PAIN [None]
  - PRODUCTIVE COUGH [None]
  - PYREXIA [None]
  - RHINORRHOEA [None]
  - TACHYCARDIA [None]
